FAERS Safety Report 9750209 (Version 1)
Quarter: 2013Q4

REPORT INFORMATION
  Report Type: Spontaneous
  Country: US (occurrence: US)
  Receive Date: 20131212
  Receipt Date: 20131212
  Transmission Date: 20140711
  Serious: No
  Sender: FDA-Public Use
  Company Number: US-ENDO PHARMACEUTICALS INC.-PRED20120051

PATIENT
  Age: 97 Year
  Sex: Female
  Weight: 54.48 kg

DRUGS (8)
  1. PREDNISONE TABLETS 20MG [Suspect]
     Indication: DRUG HYPERSENSITIVITY
     Route: 048
     Dates: start: 20120802
  2. CLOBETASOL [Suspect]
     Indication: DRUG HYPERSENSITIVITY
     Dosage: UNKNOWN
     Route: 061
     Dates: start: 20120802
  3. MIDODRINE [Suspect]
     Indication: HYPOTENSION
     Route: 048
     Dates: start: 20120522, end: 20120821
  4. SYNTHROID [Concomitant]
     Indication: HYPOTHYROIDISM
     Dosage: UNKNOWN
     Route: 065
  5. METOPROLOL [Concomitant]
     Indication: PRODUCT USED FOR UNKNOWN INDICATION
     Dosage: UNKNOWN
     Route: 065
  6. ECOTRIN [Concomitant]
     Indication: ARTHRITIS
     Dosage: UNKNOWN
     Route: 065
  7. ZOCOR [Concomitant]
     Indication: BLOOD CHOLESTEROL INCREASED
     Dosage: UNKNOWN
     Route: 065
  8. VITAMIN D [Concomitant]
     Indication: VITAMIN SUPPLEMENTATION
     Dosage: UNKNOWN
     Route: 065

REACTIONS (1)
  - Hypertension [Recovering/Resolving]
